FAERS Safety Report 10243523 (Version 3)
Quarter: 2015Q3

REPORT INFORMATION
  Report Type: Spontaneous
  Country: US (occurrence: None)
  Receive Date: 20140616
  Receipt Date: 20150904
  Transmission Date: 20151125
  Serious: Yes (Other)
  Sender: FDA-Public Use
  Company Number: ADR-2014-00770

PATIENT
  Sex: Female

DRUGS (3)
  1. COMPOUNDED BACLOFEN 550 MCG/ML [Suspect]
     Active Substance: BACLOFEN
     Indication: PAIN
     Dosage: 74.55 MCG/DAY
  2. BUPIVACAINE INTRATHECAL 300 MCG/ML [Suspect]
     Active Substance: BUPIVACAINE
     Dosage: 40.66 MCG/DAY
  3. DILAUDID [Suspect]
     Active Substance: HYDROMORPHONE HYDROCHLORIDE
     Route: 037

REACTIONS (8)
  - Fatigue [None]
  - Medical device site swelling [None]
  - Medical device site erythema [None]
  - Medical device site infection [None]
  - Device kink [None]
  - Medical device site pain [None]
  - Therapeutic response decreased [None]
  - Burning sensation [None]
